FAERS Safety Report 5907665-3 (Version None)
Quarter: 2008Q4

REPORT INFORMATION
  Report Type: 
  Country: None (occurrence: None)
  Receive Date: 20081003
  Receipt Date: 19920327
  Transmission Date: 20090506
  Serious: Yes (Death)
  Sender: FDA-Public Use
  Company Number: US-ROCHE-19305

PATIENT
  Age: 37 Year
  Sex: Female

DRUGS (8)
  1. TORADOL [Suspect]
     Indication: BACK PAIN
     Route: 030
     Dates: start: 19920301
  2. AZMACORT [Concomitant]
  3. PROVENTIL [Concomitant]
  4. VICODIN [Concomitant]
  5. HISMANAL [Concomitant]
  6. ANTIVERT [Concomitant]
  7. SLOW-K [Concomitant]
  8. UNKNOWN DRUGS [Concomitant]
     Route: 055

REACTIONS (1)
  - DEATH [None]
